FAERS Safety Report 12530676 (Version 2)
Quarter: 2016Q4

REPORT INFORMATION
  Report Type: Spontaneous
  Country: FR (occurrence: FR)
  Receive Date: 20160706
  Receipt Date: 20161115
  Transmission Date: 20170207
  Serious: Yes (Hospitalization)
  Sender: FDA-Public Use
  Company Number: FR-PFIZER INC-2016317123

PATIENT
  Age: 31 Year
  Sex: Male

DRUGS (10)
  1. DACARBAZINE MEDAC [Suspect]
     Active Substance: DACARBAZINE
     Indication: HODGKIN^S DISEASE
     Dosage: UNK, CYCLIC
     Route: 042
     Dates: start: 20160523, end: 20160705
  2. BLEOMYCINE BELLON [Suspect]
     Active Substance: BLEOMYCIN SULFATE
     Indication: HODGKIN^S DISEASE
     Dosage: UNK, CYCLIC
     Route: 042
     Dates: start: 20160523, end: 20160523
  3. DEXERYL /01579901/ [Concomitant]
     Active Substance: GLYCERIN\MINERAL OIL\PARAFFIN
     Dosage: UNK
  4. BACTRIM [Concomitant]
     Active Substance: SULFAMETHOXAZOLE\TRIMETHOPRIM
     Dosage: UNK
  5. VELBE [Suspect]
     Active Substance: VINBLASTINE SULFATE
     Indication: HODGKIN^S DISEASE
     Dosage: UNK, CYCLIC
     Route: 042
     Dates: start: 20160523, end: 20160705
  6. FOLIC ACID. [Concomitant]
     Active Substance: FOLIC ACID
     Dosage: UNK
  7. ZELITREX [Concomitant]
     Active Substance: VALACYCLOVIR HYDROCHLORIDE
     Dosage: UNK
  8. ADRIBLASTINE [Suspect]
     Active Substance: DOXORUBICIN
     Indication: HODGKIN^S DISEASE
     Dosage: UNK, CYCLIC
     Route: 042
     Dates: start: 20160523, end: 20160705
  9. BETAMETHASONE. [Concomitant]
     Active Substance: BETAMETHASONE
     Dosage: UNK
  10. CETIRIZINE HYDROCHLORIDE. [Concomitant]
     Active Substance: CETIRIZINE HYDROCHLORIDE
     Dosage: UNK

REACTIONS (3)
  - Paraesthesia [Recovered/Resolved]
  - Flagellate dermatitis [Recovered/Resolved]
  - Acute polyneuropathy [Recovered/Resolved]

NARRATIVE: CASE EVENT DATE: 20160602
